FAERS Safety Report 9312657 (Version 3)
Quarter: 2013Q3

REPORT INFORMATION
  Report Type: Spontaneous
  Country: ES (occurrence: ES)
  Receive Date: 20130528
  Receipt Date: 20130905
  Transmission Date: 20140515
  Serious: Yes (Hospitalization)
  Sender: FDA-Public Use
  Company Number: ES-JNJFOC-20130517659

PATIENT
  Age: 86 Year
  Sex: Female

DRUGS (4)
  1. PALEXIA RETARD [Concomitant]
     Indication: PHANTOM PAIN
     Route: 048
     Dates: start: 20130324, end: 20130326
  2. PALEXIA RETARD [Concomitant]
     Indication: PHANTOM PAIN
     Route: 048
     Dates: start: 20130312, end: 20130323
  3. PALEXIA RETARD [Concomitant]
     Indication: PHANTOM PAIN
     Route: 048
     Dates: start: 20130308, end: 20130311
  4. PALEXIA RETARD [Suspect]
     Indication: PHANTOM PAIN
     Route: 048
     Dates: start: 20130327, end: 20130403

REACTIONS (1)
  - Myoclonus [Recovered/Resolved]
